FAERS Safety Report 19653828 (Version 1)
Quarter: 2021Q3

REPORT INFORMATION
  Report Type: Spontaneous
  Country: US (occurrence: US)
  Receive Date: 20210803
  Receipt Date: 20210803
  Transmission Date: 20211014
  Serious: No
  Sender: FDA-Public Use
  Company Number: US-BAUSCH-BL-2021-025716

PATIENT
  Age: 77 Year
  Sex: Female

DRUGS (1)
  1. LUZU [Suspect]
     Active Substance: LULICONAZOLE
     Indication: FUNGAL SKIN INFECTION
     Dosage: QD, APPLYING TOO MUCH OR NOT ENOUGH
     Route: 061
     Dates: start: 20210713

REACTIONS (3)
  - Patient dissatisfaction with treatment [Unknown]
  - Product closure removal difficult [Unknown]
  - Application site pain [Unknown]

NARRATIVE: CASE EVENT DATE: 202107
